FAERS Safety Report 5451277-5 (Version None)
Quarter: 2007Q3

REPORT INFORMATION
  Report Type: 
  Country: None (occurrence: None)
  Receive Date: 20070911
  Receipt Date: 20070911
  Transmission Date: 20080115
  Serious: Yes (Hospitalization)
  Sender: FDA-Public Use
  Company Number: None

PATIENT
  Age: 59 Year
  Sex: Female
  Weight: 159.6662 kg

DRUGS (1)
  1. CUBICIN [Suspect]
     Indication: ARTHRITIS BACTERIAL
     Dosage: 1000 MG DAILY IV
     Route: 042
     Dates: start: 20070824, end: 20070904

REACTIONS (1)
  - LIVER FUNCTION TEST ABNORMAL [None]
